FAERS Safety Report 14541460 (Version 1)
Quarter: 2018Q1

REPORT INFORMATION
  Report Type: Spontaneous
  Country: IT (occurrence: IT)
  Receive Date: 20180216
  Receipt Date: 20180216
  Transmission Date: 20180509
  Serious: Yes (Hospitalization)
  Sender: FDA-Public Use
  Company Number: IT-OTSUKA-DJ20105147

PATIENT
  Age: 67 Year
  Sex: Male

DRUGS (3)
  1. OPC-14597 [Suspect]
     Active Substance: CILOSTAZOL
     Indication: SCHIZOPHRENIA
     Dosage: 7.5 ML, UNK
     Route: 030
     Dates: start: 20100726, end: 20100728
  2. MODITEN [Suspect]
     Active Substance: FLUPHENAZINE HYDROCHLORIDE
     Indication: PRODUCT USED FOR UNKNOWN INDICATION
     Dosage: 1 DF=1/2 VIAL AND HALF VIAL ON 21-JUL-2010 NEXT ADMINISTRATION ON 30AUG10
     Route: 030
     Dates: start: 20100707
  3. ABILIFY [Suspect]
     Active Substance: ARIPIPRAZOLE
     Indication: SCHIZOPHRENIA
     Dosage: 15 MG, UNK
     Route: 048
     Dates: end: 20100725

REACTIONS (2)
  - Transaminases abnormal [Unknown]
  - Epilepsy [Unknown]

NARRATIVE: CASE EVENT DATE: 201007
